FAERS Safety Report 9374858 (Version 2)
Quarter: 2013Q3

REPORT INFORMATION
  Report Type: Spontaneous
  Country: JP (occurrence: JP)
  Receive Date: 20130628
  Receipt Date: 20130705
  Transmission Date: 20140515
  Serious: No
  Sender: FDA-Public Use
  Company Number: JP-B.I. PHARMACEUTICALS,INC./RIDGEFIELD-2013-BI-18066NB

PATIENT
  Sex: 0

DRUGS (2)
  1. TRAZENTA [Suspect]
     Indication: DIABETES MELLITUS
     Dosage: 5 MG
     Route: 048
  2. SYNTHETIC ANTIBACTERIALS [Suspect]
     Route: 048

REACTIONS (1)
  - Stomatitis [Unknown]
